FAERS Safety Report 17388280 (Version 1)
Quarter: 2020Q1

REPORT INFORMATION
  Report Type: Spontaneous
  Country: US (occurrence: US)
  Receive Date: 20200207
  Receipt Date: 20200207
  Transmission Date: 20200409
  Serious: Yes (Hospitalization, Other)
  Sender: FDA-Public Use
  Company Number: US-009507513-2002USA000211

PATIENT
  Age: 65 Year
  Sex: Female
  Weight: 90 kg

DRUGS (8)
  1. METOPROLOL. [Concomitant]
     Active Substance: METOPROLOL
     Indication: HYPERTENSION
  2. PRINIVIL [Suspect]
     Active Substance: LISINOPRIL
     Route: 048
  3. EPINEPHRINE. [Concomitant]
     Active Substance: EPINEPHRINE
     Dosage: 3 MICROGRAM/MIN
     Route: 042
  4. ASPIRIN. [Concomitant]
     Active Substance: ASPIRIN
  5. RIVAROXABAN [Concomitant]
     Active Substance: RIVAROXABAN
  6. METFORMIN [Concomitant]
     Active Substance: METFORMIN HYDROCHLORIDE
  7. AMINOCAPROIC ACID. [Concomitant]
     Active Substance: AMINOCAPROIC ACID
     Dosage: A TOTAL OF 30 GRAMS
  8. NOREPINEPHRINE. [Concomitant]
     Active Substance: NOREPINEPHRINE
     Dosage: 3 MICROGRAM/MIN
     Route: 042

REACTIONS (1)
  - Angioedema [Recovered/Resolved]
